FAERS Safety Report 6767243-3 (Version None)
Quarter: 2010Q2

REPORT INFORMATION
  Report Type: 
  Country: None (occurrence: None)
  Receive Date: 20100611
  Receipt Date: 20100611
  Transmission Date: 20101027
  Serious: Yes (Death, Hospitalization)
  Sender: FDA-Public Use
  Company Number: None

PATIENT
  Sex: Female
  Weight: 54.4 kg

DRUGS (6)
  1. MEMANTINE HYDROCHLORIDE [Suspect]
     Dosage: 75 MG
  2. DECADRON [Concomitant]
  3. DILANTIN [Concomitant]
  4. GRAVOL TAB [Concomitant]
  5. PANTOPRAZOLE [Concomitant]
  6. ZOFRAN [Concomitant]

REACTIONS (5)
  - METASTASES TO ABDOMINAL CAVITY [None]
  - METASTASES TO SMALL INTESTINE [None]
  - NAUSEA [None]
  - SMALL INTESTINAL OBSTRUCTION [None]
  - VOMITING [None]
